FAERS Safety Report 16124820 (Version 1)
Quarter: 2019Q1

REPORT INFORMATION
  Report Type: Report from Study
  Country: US (occurrence: US)
  Receive Date: 20190327
  Receipt Date: 20190327
  Transmission Date: 20190418
  Serious: Yes (Other)
  Sender: FDA-Public Use
  Company Number: US-GILEAD-2019-0398951

PATIENT
  Age: 43 Year
  Sex: Female

DRUGS (3)
  1. ADEMPAS [Concomitant]
     Active Substance: RIOCIGUAT
  2. AMBRISENTAN [Suspect]
     Active Substance: AMBRISENTAN
     Indication: PRODUCT USED FOR UNKNOWN INDICATION
     Dosage: 5 MG, QD
     Route: 065
     Dates: start: 20160118
  3. WARFARIN [Concomitant]
     Active Substance: WARFARIN

REACTIONS (8)
  - Pulmonary fibrosis [Unknown]
  - Back pain [Not Recovered/Not Resolved]
  - Dyspnoea [Unknown]
  - Hysterectomy [Unknown]
  - Chest pain [Not Recovered/Not Resolved]
  - Panic attack [Unknown]
  - Dyspnoea exertional [Unknown]
  - Infection [Unknown]
